FAERS Safety Report 23451960 (Version 1)
Quarter: 2024Q1

REPORT INFORMATION
  Report Type: Spontaneous
  Country: US (occurrence: None)
  Receive Date: 20240127
  Receipt Date: 20240127
  Transmission Date: 20240410
  Serious: Yes (Death, Hospitalization)
  Sender: FDA-Public Use
  Company Number: None

PATIENT
  Age: 87 Year
  Sex: Male
  Weight: 117.3 kg

DRUGS (10)
  1. GEMCITABINE HYDROCHLORIDE [Suspect]
     Active Substance: GEMCITABINE HYDROCHLORIDE
     Dates: end: 20231226
  2. PACLITAXEL [Suspect]
     Active Substance: PACLITAXEL
     Dates: end: 20231226
  3. ABRAXANE [Concomitant]
  4. ASPIRIN [Concomitant]
     Active Substance: ASPIRIN
  5. DEXAMETHASONE [Concomitant]
  6. FINASTERIDE [Concomitant]
  7. GEMCITABINE [Concomitant]
  8. LASIX [Concomitant]
  9. POTASSIUM CHLORIDE [Concomitant]
  10. TRAMADOL [Concomitant]

REACTIONS (15)
  - Acute respiratory failure [None]
  - Fall [None]
  - Mental status changes [None]
  - Asthenia [None]
  - Bronchiolitis [None]
  - Respiratory syncytial virus infection [None]
  - Pulmonary embolism [None]
  - Metastases to peritoneum [None]
  - General physical health deterioration [None]
  - Hypoxia [None]
  - Abdominal pain [None]
  - Ascites [None]
  - Pleural effusion [None]
  - Disease progression [None]
  - Atelectasis [None]

NARRATIVE: CASE EVENT DATE: 20231221
